FAERS Safety Report 7365892-5 (Version None)
Quarter: 2011Q1

REPORT INFORMATION
  Report Type: 
  Country: None (occurrence: None)
  Receive Date: 20110322
  Receipt Date: 20110315
  Transmission Date: 20110831
  Serious: Yes (Other)
  Sender: FDA-Public Use
  Company Number: TR-ASTELLAS-2011EU001348

PATIENT
  Sex: Female
  Weight: 82 kg

DRUGS (2)
  1. BLINDED SOLIFENACIN [Suspect]
     Indication: HYPERTONIC BLADDER
     Dosage: UNK
     Route: 048
     Dates: start: 20110311
  2. MUSCLE RELAXANTS [Suspect]
     Indication: MUSCLE RELAXANT THERAPY
     Dosage: UNK
     Route: 048
     Dates: start: 20110312, end: 20110312

REACTIONS (2)
  - PEPTIC ULCER [None]
  - MOUTH HAEMORRHAGE [None]
